FAERS Safety Report 23979793 (Version 2)
Quarter: 2024Q3

REPORT INFORMATION
  Report Type: Spontaneous
  Country: US (occurrence: US)
  Receive Date: 20240616
  Receipt Date: 20240710
  Transmission Date: 20241017
  Serious: No
  Sender: ROCHE
  Company Number: AU-ROCHE-3578069

PATIENT
  Age: 85 Year
  Sex: Female
  Weight: 72.21 kg

DRUGS (11)
  1. ALECENSA [Suspect]
     Active Substance: ALECTINIB HYDROCHLORIDE
     Indication: Neoplasm malignant
     Dosage: (4) 150 MG CAPSULE TWICE A DAY ;ONGOING: YES
     Route: 048
     Dates: start: 20231229
  2. LASIX [Concomitant]
     Active Substance: FUROSEMIDE
     Dosage: STARTED AFTER SHE STARTED ALECENSA
     Route: 048
  3. ROSUVASTATIN [Concomitant]
     Active Substance: ROSUVASTATIN
     Indication: Blood cholesterol increased
     Dosage: STARTED BEFORE ALECENSA
     Route: 048
  4. LEVOTHYROXINE [Concomitant]
     Active Substance: LEVOTHYROXINE\LEVOTHYROXINE SODIUM
     Dosage: TAKES BEFORE BREAKFAST; STARTED BEFORE ALECENSA
     Route: 048
  5. GABAPENTIN [Concomitant]
     Active Substance: GABAPENTIN
     Indication: Pain
     Dosage: TAKES IT ONLY AS NEEDED; STARTED BEFORE ALECENSA
     Route: 048
  6. ASPIRIN [Concomitant]
     Active Substance: ASPIRIN
     Dosage: STARTED BEFORE ALECENSA
     Route: 048
  7. POTASSIUM [Concomitant]
     Active Substance: POTASSIUM
     Indication: Blood potassium decreased
     Dosage: (2) 20 MEQ TABLETS; STARTED BEFORE ALECENSA
     Route: 048
  8. VITAMIN D3 [Concomitant]
     Active Substance: CHOLECALCIFEROL
     Indication: Vitamin D decreased
     Dosage: STARTED BEFORE ALECENSA
     Route: 048
  9. ZINC [Concomitant]
     Active Substance: ZINC
     Indication: Inflammation
     Route: 048
  10. AIRBORNE [Concomitant]
     Active Substance: HERBALS\MINERALS\VITAMINS
     Dosage: TAKES 1 TAB IN WATER DAILY
     Route: 048
  11. SODIUM CHLORIDE [Concomitant]
     Active Substance: SODIUM CHLORIDE
     Dosage: STARTED AFTER ALECENSA
     Route: 045
     Dates: start: 2024

REACTIONS (5)
  - Fluid retention [Not Recovered/Not Resolved]
  - Sinusitis [Recovered/Resolved]
  - Ill-defined disorder [Recovering/Resolving]
  - Dyspnoea [Unknown]
  - Product complaint [Unknown]

NARRATIVE: CASE EVENT DATE: 20240101
